FAERS Safety Report 6244831-4 (Version None)
Quarter: 2009Q2

REPORT INFORMATION
  Report Type: 
  Country: None (occurrence: None)
  Receive Date: 20090623
  Receipt Date: 20090623
  Transmission Date: 20091009
  Serious: Yes (Hospitalization)
  Sender: FDA-Public Use
  Company Number: None

PATIENT
  Sex: Female
  Weight: 60 kg

DRUGS (1)
  1. LEVITIRACETAM 500 MG UCB [Suspect]
     Indication: EPILEPSY
     Dosage: 1000 MG QAM PO; 1500 MG QPM PO
     Route: 048
     Dates: start: 20000101, end: 20090101

REACTIONS (2)
  - MIGRAINE [None]
  - PRODUCT SUBSTITUTION ISSUE [None]
